FAERS Safety Report 20897918 (Version 1)
Quarter: 2022Q2

REPORT INFORMATION
  Report Type: Spontaneous
  Country: US (occurrence: US)
  Receive Date: 20220531
  Receipt Date: 20220531
  Transmission Date: 20220721
  Serious: No
  Sender: FDA-Public Use
  Company Number: US-PFIZER INC-202200771223

PATIENT
  Age: 69 Year
  Sex: Male
  Weight: 92.99 kg

DRUGS (3)
  1. PAXLOVID [Suspect]
     Active Substance: NIRMATRELVIR\RITONAVIR
     Indication: COVID-19 treatment
     Dosage: UNK
     Route: 048
  2. CIALIS [Concomitant]
     Active Substance: TADALAFIL
     Indication: Benign prostatic hyperplasia
     Dosage: 5 MG
  3. VALSARTAN [Concomitant]
     Active Substance: VALSARTAN
     Indication: Blood cholesterol
     Dosage: 160 MG

REACTIONS (1)
  - COVID-19 [Unknown]
